FAERS Safety Report 12474202 (Version 1)
Quarter: 2016Q2

REPORT INFORMATION
  Report Type: Spontaneous
  Country: SK (occurrence: SK)
  Receive Date: 20160616
  Receipt Date: 20160616
  Transmission Date: 20160815
  Serious: Yes (Hospitalization)
  Sender: FDA-Public Use
  Company Number: SK-ASTRAZENECA-2016SE65368

PATIENT
  Age: 64 Year
  Sex: Male
  Weight: 97 kg

DRUGS (2)
  1. GLIBOMED [Concomitant]
     Indication: TYPE 2 DIABETES MELLITUS
  2. FORXIGA [Suspect]
     Active Substance: DAPAGLIFLOZIN
     Indication: TYPE 2 DIABETES MELLITUS
     Route: 048
     Dates: start: 20150930, end: 201605

REACTIONS (1)
  - Myocardial infarction [Recovering/Resolving]

NARRATIVE: CASE EVENT DATE: 201605
